FAERS Safety Report 6937304-4 (Version None)
Quarter: 2010Q3

REPORT INFORMATION
  Report Type: 
  Country: None (occurrence: None)
  Receive Date: 20100823
  Receipt Date: 20100813
  Transmission Date: 20110219
  Serious: Yes (Hospitalization, Other)
  Sender: FDA-Public Use
  Company Number: Z0004783A

PATIENT
  Age: 50 Year
  Sex: Female
  Weight: 86.6 kg

DRUGS (11)
  1. PAZOPANIB [Suspect]
     Dosage: 800MG PER DAY
     Route: 048
     Dates: start: 20100615
  2. ALBUTEROL SULFATE [Concomitant]
     Dosage: 2PUFF AS REQUIRED
     Route: 055
     Dates: start: 20100701, end: 20100703
  3. INSULIN [Concomitant]
     Dosage: 5UNIT AS REQUIRED
     Route: 058
     Dates: start: 20100630, end: 20100630
  4. IPRATROPIUM BROMIDE [Concomitant]
     Dosage: 1PUFF SINGLE DOSE
     Route: 055
     Dates: start: 20100701, end: 20100701
  5. CYCLOBENZAPRINE HCL [Concomitant]
     Dosage: 10MG SINGLE DOSE
     Route: 048
     Dates: start: 20100703, end: 20100703
  6. EPINEPHRINE [Concomitant]
     Dosage: .3MG SINGLE DOSE
     Route: 030
     Dates: start: 20100702, end: 20100702
  7. FAMOTIDINE [Concomitant]
     Indication: NAUSEA
     Dosage: 20MG AS REQUIRED
     Route: 042
     Dates: start: 20100630, end: 20100704
  8. FLUTICASONE PROPIONATE [Concomitant]
     Dosage: 2PUFF AS REQUIRED
     Route: 045
     Dates: start: 20100702, end: 20100704
  9. HEPARIN SODIUM [Concomitant]
     Indication: THROMBOSIS PROPHYLAXIS
     Dosage: 5000UNIT AS REQUIRED
     Route: 058
     Dates: start: 20100630, end: 20100701
  10. IPRATROPIUM BROMIDE [Concomitant]
     Dosage: 2PUFF AS REQUIRED
     Route: 055
     Dates: start: 20100702, end: 20100704
  11. OXYCODONE [Concomitant]
     Indication: PAIN
     Dosage: 2TAB SINGLE DOSE
     Route: 048
     Dates: start: 20100702, end: 20100702

REACTIONS (2)
  - LIVER FUNCTION TEST ABNORMAL [None]
  - PYREXIA [None]
